FAERS Safety Report 8023201-2 (Version None)
Quarter: 2012Q1

REPORT INFORMATION
  Report Type: 
  Country: None (occurrence: None)
  Receive Date: 20120104
  Receipt Date: 20111229
  Transmission Date: 20120608
  Serious: Yes (Hospitalization)
  Sender: FDA-Public Use
  Company Number: KR-ELI_LILLY_AND_COMPANY-KR201112006333

PATIENT
  Age: 59 Year
  Sex: Male
  Weight: 63 kg

DRUGS (3)
  1. HUMALOG MIX 50/50 [Suspect]
     Indication: DIABETES MELLITUS
     Dosage: 13 U, EACH MORNING
     Dates: start: 20110501
  2. HUMALOG MIX 50/50 [Suspect]
     Dosage: 12 U, EACH EVENING
     Dates: start: 20110501
  3. HUMALOG MIX 50/50 [Suspect]
     Dosage: 15 U, OTHER
     Dates: start: 20110501

REACTIONS (1)
  - COLONIC POLYP [None]
